FAERS Safety Report 24896440 (Version 2)
Quarter: 2025Q1

REPORT INFORMATION
  Report Type: Spontaneous
  Country: US (occurrence: US)
  Receive Date: 20250128
  Receipt Date: 20250322
  Transmission Date: 20250409
  Serious: No
  Sender: SANOFI AVENTIS
  Company Number: US-SA-2025SA023857

PATIENT
  Age: 18 Year
  Sex: Female

DRUGS (9)
  1. DUPIXENT [Suspect]
     Active Substance: DUPILUMAB
     Indication: Dermatitis atopic
     Dosage: 300 MG, QOW
     Route: 058
     Dates: start: 202203
  2. DUPIXENT [Suspect]
     Active Substance: DUPILUMAB
     Dosage: 300 MG, QOW
     Route: 058
     Dates: start: 20240726
  3. TACROLIMUS [Concomitant]
     Active Substance: TACROLIMUS
  4. TACROLIMUS [Concomitant]
     Active Substance: TACROLIMUS
  5. FLUTICASONE [Concomitant]
     Active Substance: FLUTICASONE
  6. NATROBA [Concomitant]
     Active Substance: SPINOSAD
  7. LORATADINE [Concomitant]
     Active Substance: LORATADINE
  8. EPINEPHRINE [Concomitant]
     Active Substance: EPINEPHRINE
  9. CETIRIZINE [Concomitant]
     Active Substance: CETIRIZINE HYDROCHLORIDE

REACTIONS (4)
  - Rash erythematous [Recovering/Resolving]
  - Sleep disorder due to a general medical condition [Unknown]
  - Pruritus [Recovering/Resolving]
  - Skin burning sensation [Recovering/Resolving]

NARRATIVE: CASE EVENT DATE: 20241201
